FAERS Safety Report 7910440-1 (Version None)
Quarter: 2011Q4

REPORT INFORMATION
  Report Type: 
  Country: None (occurrence: None)
  Receive Date: 20111111
  Receipt Date: 20111028
  Transmission Date: 20120403
  Serious: Yes (Hospitalization)
  Sender: FDA-Public Use
  Company Number: US-UCBSA-031394

PATIENT
  Age: 5 Year
  Sex: Male
  Weight: 20.7 kg

DRUGS (10)
  1. LACOSAMIDE [Suspect]
     Indication: PARTIAL SEIZURES
     Route: 048
     Dates: start: 20110211, end: 20110216
  2. LACOSAMIDE [Suspect]
     Route: 048
     Dates: start: 20110407, end: 20110415
  3. LACOSAMIDE [Suspect]
     Dosage: VIA G-TUBE
     Dates: start: 20110419
  4. KEPPRA [Concomitant]
     Route: 048
     Dates: start: 20101208
  5. LACOSAMIDE [Suspect]
     Route: 048
     Dates: start: 20110321, end: 20110328
  6. LACOSAMIDE [Suspect]
     Route: 048
     Dates: start: 20110314, end: 20110320
  7. LACOSAMIDE [Suspect]
     Route: 048
     Dates: start: 20110329, end: 20110406
  8. TOPAMAX [Concomitant]
     Route: 048
     Dates: start: 20100519
  9. LACOSAMIDE [Suspect]
     Route: 048
     Dates: start: 20110217, end: 20110313
  10. LAMOTRIGINE [Concomitant]
     Route: 048
     Dates: start: 20101208

REACTIONS (1)
  - VIRAL UPPER RESPIRATORY TRACT INFECTION [None]
